FAERS Safety Report 6235451-6 (Version None)
Quarter: 2009Q2

REPORT INFORMATION
  Report Type: 
  Country: None (occurrence: None)
  Receive Date: 20090618
  Receipt Date: 20090422
  Transmission Date: 20091009
  Serious: Yes (Other)
  Sender: FDA-Public Use
  Company Number: US-ASTRAZENECA-2009UW10071

PATIENT
  Age: 79 Year
  Sex: Female
  Weight: 63 kg

DRUGS (8)
  1. RHINOCORT [Suspect]
     Route: 045
  2. RHINOCORT [Suspect]
     Route: 055
  3. VASOTEC [Concomitant]
  4. PLAVIX [Concomitant]
  5. METFORMIN HCL [Concomitant]
  6. ALBUTEROL [Concomitant]
  7. FLOVENT [Concomitant]
  8. FOSAMAX [Concomitant]

REACTIONS (1)
  - EPISTAXIS [None]
